FAERS Safety Report 8059852-9 (Version None)
Quarter: 2012Q1

REPORT INFORMATION
  Report Type: 
  Country: None (occurrence: None)
  Receive Date: 20120120
  Receipt Date: 20120113
  Transmission Date: 20120608
  Serious: Yes (Life-Threatening, Hospitalization)
  Sender: FDA-Public Use
  Company Number: CH-ELI_LILLY_AND_COMPANY-CH201201001782

PATIENT
  Sex: Male
  Weight: 79 kg

DRUGS (4)
  1. EFFIENT [Suspect]
     Dosage: 10 MG, QD
     Dates: start: 20111104
  2. ASPIRIN [Concomitant]
     Indication: ACUTE MYOCARDIAL INFARCTION
     Dosage: 300-500 MG, SINGLE
  3. ASPIRIN [Concomitant]
     Dosage: 100 MG, QD
  4. EFFIENT [Suspect]
     Indication: ACUTE MYOCARDIAL INFARCTION
     Dosage: 60 MG, SINGLE LOADING DOSE
     Dates: start: 20111104

REACTIONS (4)
  - ANAEMIA [None]
  - POST PROCEDURAL HAEMATOMA [None]
  - CARDIOGENIC SHOCK [None]
  - PNEUMONIA [None]
